FAERS Safety Report 8062558-3 (Version None)
Quarter: 2012Q1

REPORT INFORMATION
  Report Type: 
  Country: None (occurrence: None)
  Receive Date: 20120123
  Receipt Date: 20120117
  Transmission Date: 20120608
  Serious: Yes (Hospitalization, Disabling)
  Sender: FDA-Public Use
  Company Number: US-SANOFI-AVENTIS-2012SA003639

PATIENT
  Age: 54 Year
  Sex: Male

DRUGS (2)
  1. LANTUS [Suspect]
     Dosage: 30-50 UNITS DAILY
     Route: 058
  2. SOLOSTAR [Suspect]

REACTIONS (3)
  - SPINAL OPERATION [None]
  - CORONARY ARTERY BYPASS [None]
  - DISABILITY [None]
